FAERS Safety Report 5727664-4 (Version None)
Quarter: 2008Q2

REPORT INFORMATION
  Report Type: 
  Country: None (occurrence: None)
  Receive Date: 20080505
  Receipt Date: 20080428
  Transmission Date: 20081010
  Serious: Yes (Hospitalization)
  Sender: FDA-Public Use
  Company Number: B0498274A

PATIENT
  Age: 66 Year
  Sex: Female
  Weight: 51 kg

DRUGS (4)
  1. LAMIVUDINE [Suspect]
     Indication: HEPATITIS B
     Dosage: 100MG PER DAY
     Route: 048
     Dates: start: 20041204, end: 20050113
  2. NEO-MINOPHAGEN-C [Concomitant]
     Indication: DRUG USE FOR UNKNOWN INDICATION
     Dosage: 80ML PER DAY
     Route: 042
     Dates: start: 20041127, end: 20041130
  3. MIRACLID [Concomitant]
     Indication: SHOCK
     Dosage: 200IU3 PER DAY
     Route: 042
     Dates: start: 20041127, end: 20041130
  4. ANTITHROMBIN [Concomitant]
     Indication: HEPATITIS FULMINANT
     Dosage: 3IU3 PER DAY
     Route: 042
     Dates: start: 20041127, end: 20041130

REACTIONS (2)
  - BLOOD AMYLASE INCREASED [None]
  - LATENT AUTOIMMUNE DIABETES IN ADULTS [None]
